FAERS Safety Report 10087167 (Version 4)
Quarter: 2014Q2

REPORT INFORMATION
  Report Type: Spontaneous
  Country: JP (occurrence: JP)
  Receive Date: 20140418
  Receipt Date: 20140625
  Transmission Date: 20141212
  Serious: Yes (Other)
  Sender: FDA-Public Use
  Company Number: JP-ABBVIE-14P-087-1227750-00

PATIENT
  Age: 0 Day
  Sex: Female
  Weight: 1.91 kg

DRUGS (2)
  1. KALETRA [Suspect]
     Indication: MATERNAL EXPOSURE TIMING UNSPECIFIED
     Route: 064
  2. ZIDOVUDINE [Suspect]
     Indication: PRODUCT USED FOR UNKNOWN INDICATION

REACTIONS (4)
  - Premature baby [Recovered/Resolved]
  - Anaemia [Recovered/Resolved]
  - Foetal exposure during pregnancy [Unknown]
  - Respiratory disorder neonatal [Recovered/Resolved]
